FAERS Safety Report 20239364 (Version 1)
Quarter: 2021Q4

REPORT INFORMATION
  Report Type: Spontaneous
  Country: CZ (occurrence: CZ)
  Receive Date: 20211228
  Receipt Date: 20211228
  Transmission Date: 20220304
  Serious: Yes (Other)
  Sender: FDA-Public Use
  Company Number: CZ-GLENMARK PHARMACEUTICALS-2021GMK068962

PATIENT
  Age: 49 Year
  Sex: Female

DRUGS (11)
  1. DEXAMETHASONE [Suspect]
     Active Substance: DEXAMETHASONE
     Indication: Migraine with aura
     Dosage: UNK
     Route: 065
     Dates: start: 2019
  2. SUMATRIPTAN [Suspect]
     Active Substance: SUMATRIPTAN
     Indication: Migraine with aura
     Dosage: UNK
     Route: 065
     Dates: start: 2019
  3. DIAZEPAM [Suspect]
     Active Substance: DIAZEPAM
     Indication: Migraine with aura
     Dosage: UNK
     Route: 065
     Dates: start: 2019
  4. ERGOTAMINE [Suspect]
     Active Substance: CAFFEINE\ERGOTAMINE\ERGOTAMINE TARTRATE
     Indication: Migraine with aura
     Dosage: UNK
     Route: 065
     Dates: start: 2019
  5. NIMESULIDE [Suspect]
     Active Substance: NIMESULIDE
     Indication: Migraine with aura
     Dosage: UNK
     Route: 065
     Dates: start: 2019
  6. TOPIRAMATE [Concomitant]
     Active Substance: TOPIRAMATE
     Indication: Migraine prophylaxis
     Dosage: 100 MILLIGRAM, QD,(50 MG, BID)2X50 MG
     Route: 065
     Dates: start: 2007, end: 201905
  7. CITALOPRAM [Concomitant]
     Active Substance: CITALOPRAM HYDROBROMIDE
     Indication: Depressed mood
     Dosage: 20 MILLIGRAM, OD
     Route: 065
     Dates: start: 201305, end: 2016
  8. CITALOPRAM [Concomitant]
     Active Substance: CITALOPRAM HYDROBROMIDE
     Dosage: 20 UNK
     Route: 065
     Dates: start: 201809
  9. METOPROLOL [Concomitant]
     Active Substance: METOPROLOL
     Indication: Migraine
     Dosage: 100 MILLIGRAM, OD
     Route: 065
     Dates: start: 2013
  10. VALPROATE [Concomitant]
     Active Substance: VALPROIC ACID
     Dosage: 500 MILLIGRAM, 2DAYS
     Route: 065
  11. VALPROATE [Concomitant]
     Active Substance: VALPROIC ACID
     Dosage: UNK
     Route: 065

REACTIONS (6)
  - Migraine [Unknown]
  - Drug abuse [Not Recovered/Not Resolved]
  - Medication overuse headache [Not Recovered/Not Resolved]
  - Mental disorder [Unknown]
  - Disease progression [Unknown]
  - Adverse event [Unknown]
